FAERS Safety Report 11261118 (Version 1)
Quarter: 2015Q3

REPORT INFORMATION
  Report Type: Spontaneous
  Country: US (occurrence: US)
  Receive Date: 20150710
  Receipt Date: 20150710
  Transmission Date: 20151125
  Serious: No
  Sender: FDA-Public Use
  Company Number: US-PURDUE-USA-2015-0120599

PATIENT
  Sex: Female

DRUGS (4)
  1. BUTRANS [Suspect]
     Active Substance: BUPRENORPHINE
     Dosage: 10 MCG/HR, WEEKLY
     Route: 062
     Dates: start: 20141001, end: 20141008
  2. BUTRANS [Suspect]
     Active Substance: BUPRENORPHINE
     Indication: NERVE INJURY
     Dosage: 20 MCG/HR, WEEKLY
     Route: 062
     Dates: start: 20150121
  3. BUTRANS [Suspect]
     Active Substance: BUPRENORPHINE
     Dosage: 15 MCG/HR, WEEKLY
     Route: 062
  4. BUTRANS [Suspect]
     Active Substance: BUPRENORPHINE
     Dosage: 15 MCG/HR, WEEKLY
     Route: 062

REACTIONS (5)
  - Drug hypersensitivity [Unknown]
  - Application site pruritus [Unknown]
  - Wrong technique in product usage process [Unknown]
  - Application site erythema [Unknown]
  - Drug ineffective [Unknown]
